FAERS Safety Report 21709222 (Version 7)
Quarter: 2023Q4

REPORT INFORMATION
  Report Type: Spontaneous
  Country: CA (occurrence: CA)
  Receive Date: 20221210
  Receipt Date: 20231229
  Transmission Date: 20240110
  Serious: Yes (Other)
  Sender: FDA-Public Use
  Company Number: CA-CELLTRION INC.-2021CA018136

PATIENT

DRUGS (24)
  1. INFLECTRA [Suspect]
     Active Substance: INFLIXIMAB-DYYB
     Indication: Crohn^s disease
     Dosage: 5 MG/KG, 0,2,6 THEN EVERY 8 WEEKS
     Route: 042
     Dates: start: 20211109
  2. INFLECTRA [Suspect]
     Active Substance: INFLIXIMAB-DYYB
     Dosage: 5 MG/KG, 0,2,6 THEN EVERY 8 WEEKS
     Route: 042
     Dates: start: 20211122
  3. INFLECTRA [Suspect]
     Active Substance: INFLIXIMAB-DYYB
     Dosage: 5 MG/KG, 0,2,6 THEN EVERY 8 WEEKS
     Route: 042
     Dates: start: 20211220
  4. INFLECTRA [Suspect]
     Active Substance: INFLIXIMAB-DYYB
     Dosage: 5 MG/KG, 0,2,6 THEN EVERY 8 WEEKS
     Route: 042
     Dates: start: 20220216
  5. INFLECTRA [Suspect]
     Active Substance: INFLIXIMAB-DYYB
     Dosage: 5 MG/KG, 0,2,6 THEN EVERY 8 WEEKS
     Route: 042
     Dates: start: 20220413
  6. INFLECTRA [Suspect]
     Active Substance: INFLIXIMAB-DYYB
     Dosage: 5 MG/KG, 0,2,6 THEN EVERY 8 WEEKS
     Route: 042
     Dates: start: 20220608
  7. INFLECTRA [Suspect]
     Active Substance: INFLIXIMAB-DYYB
     Dosage: 5 MG/KG, 0,2,6 THEN EVERY 8 WEEKS
     Route: 042
     Dates: start: 20220803
  8. INFLECTRA [Suspect]
     Active Substance: INFLIXIMAB-DYYB
     Dosage: 5 MG/KG, 0,2,6 THEN EVERY 8 WEEKS
     Route: 042
     Dates: start: 20220928
  9. INFLECTRA [Suspect]
     Active Substance: INFLIXIMAB-DYYB
     Dosage: 5 MG/KG, 0,2,6 THEN EVERY 8 WEEKS
     Route: 042
     Dates: start: 20221130
  10. INFLECTRA [Suspect]
     Active Substance: INFLIXIMAB-DYYB
     Dosage: 5 MG/KG (256 MG), 0,2,6 THEN EVERY 8 WEEKS
     Route: 042
     Dates: start: 20230125
  11. INFLECTRA [Suspect]
     Active Substance: INFLIXIMAB-DYYB
     Dosage: 5 MG/KG, 0,2,6 THEN EVERY 8 WEEKS
     Route: 042
     Dates: start: 20230322
  12. INFLECTRA [Suspect]
     Active Substance: INFLIXIMAB-DYYB
     Dosage: 5 MG/KG (260 MG), 0,2,6 THEN EVERY 8 WEEKS (EVERY 8 WEEKS)
     Route: 042
     Dates: start: 20230517
  13. INFLECTRA [Suspect]
     Active Substance: INFLIXIMAB-DYYB
     Dosage: 7 MG/KG (350 MG), EVERY 8 WEEKS
     Route: 042
     Dates: start: 20230712
  14. INFLECTRA [Suspect]
     Active Substance: INFLIXIMAB-DYYB
     Dosage: 7 MG/KG (350 MG), EVERY 8 WEEKS
     Route: 042
     Dates: start: 20230712
  15. INFLECTRA [Suspect]
     Active Substance: INFLIXIMAB-DYYB
     Dosage: 7 MG/KG (364 MG), EVERY 8 WEEKS (AFTER 7 WEEKS AND 6 DAYS)
     Route: 042
     Dates: start: 20230905
  16. INFLECTRA [Suspect]
     Active Substance: INFLIXIMAB-DYYB
     Dosage: 371 MG, EVERY 8 WEEKS
     Route: 042
     Dates: start: 20231031
  17. INFLECTRA [Suspect]
     Active Substance: INFLIXIMAB-DYYB
     Dosage: 371 MG, EVERY 8 WEEKS
     Route: 042
     Dates: start: 20231031
  18. INFLECTRA [Suspect]
     Active Substance: INFLIXIMAB-DYYB
     Dosage: 371 MG, EVERY 8 WEEKS
     Route: 042
     Dates: start: 20231031
  19. INFLECTRA [Suspect]
     Active Substance: INFLIXIMAB-DYYB
     Dosage: 385 MG, EVERY 8 WEEKS
     Route: 042
     Dates: start: 20231219
  20. PREDNISONE [Concomitant]
     Active Substance: PREDNISONE
     Dosage: UNK
     Route: 065
     Dates: start: 20210915
  21. PREDNISONE [Concomitant]
     Active Substance: PREDNISONE
     Dosage: 1 DF
     Route: 065
  22. SYNTHROID [Concomitant]
     Active Substance: LEVOTHYROXINE SODIUM
     Dosage: UNK
     Route: 065
  23. SYNTHROID [Concomitant]
     Active Substance: LEVOTHYROXINE SODIUM
     Dosage: 1 DF
     Route: 065
  24. SYNTHROID [Concomitant]
     Active Substance: LEVOTHYROXINE SODIUM
     Dosage: UNK
     Route: 065

REACTIONS (20)
  - Uveitis [Recovered/Resolved]
  - Pneumonia [Recovered/Resolved]
  - Psoriasis [Not Recovered/Not Resolved]
  - Arthralgia [Recovered/Resolved]
  - Drug level decreased [Unknown]
  - Drug specific antibody present [Unknown]
  - Condition aggravated [Recovered/Resolved]
  - Headache [Not Recovered/Not Resolved]
  - Myalgia [Unknown]
  - Infusion site joint erythema [Recovered/Resolved]
  - Infusion site joint discomfort [Not Recovered/Not Resolved]
  - Pruritus [Recovered/Resolved]
  - Mouth ulceration [Recovered/Resolved]
  - Aphthous ulcer [Recovered/Resolved]
  - Erythema nodosum [Recovered/Resolved]
  - Nodule [Unknown]
  - Oropharyngeal pain [Not Recovered/Not Resolved]
  - Hypersensitivity [Unknown]
  - Off label use [Unknown]
  - Intentional product use issue [Unknown]

NARRATIVE: CASE EVENT DATE: 20211109
